FAERS Safety Report 23982810 (Version 1)
Quarter: 2024Q2

REPORT INFORMATION
  Report Type: Report from Study
  Country: US (occurrence: US)
  Receive Date: 20240617
  Receipt Date: 20240617
  Transmission Date: 20240716
  Serious: No
  Sender: FDA-Public Use
  Company Number: US-LUNDBECK-DKLU4000221

PATIENT

DRUGS (1)
  1. VYEPTI [Suspect]
     Active Substance: EPTINEZUMAB-JJMR
     Indication: Migraine
     Dosage: 100 003
     Route: 041
     Dates: start: 20240605

REACTIONS (3)
  - Ocular discomfort [Unknown]
  - Swelling of eyelid [Unknown]
  - Visual impairment [Unknown]

NARRATIVE: CASE EVENT DATE: 20240605
